FAERS Safety Report 13960248 (Version 1)
Quarter: 2017Q3

REPORT INFORMATION
  Report Type: Report from Study
  Country: None (occurrence: IT)
  Receive Date: 20170912
  Receipt Date: 20170912
  Transmission Date: 20171128
  Serious: Yes (Death)
  Sender: FDA-Public Use
  Company Number: IT-ABBVIE-17K-083-2099107-00

PATIENT
  Age: 81 Year
  Sex: Female
  Weight: 50 kg

DRUGS (1)
  1. DUODOPA [Suspect]
     Active Substance: CARBIDOPA\LEVODOPA
     Indication: PARKINSON^S DISEASE
     Dosage: MD 7.9 PLUS 3?CR 1.7?ED 1.8
     Route: 050
     Dates: start: 20121029, end: 20170903

REACTIONS (1)
  - Transient ischaemic attack [Fatal]

NARRATIVE: CASE EVENT DATE: 20170903
